FAERS Safety Report 7162573-8 (Version None)
Quarter: 2010Q4

REPORT INFORMATION
  Report Type: 
  Country: None (occurrence: None)
  Receive Date: 20101215
  Receipt Date: 20091125
  Transmission Date: 20110411
  Serious: Yes (Hospitalization)
  Sender: FDA-Public Use
  Company Number: CH-PFIZER INC-2009302394

PATIENT
  Age: 78 Year
  Sex: Male

DRUGS (9)
  1. LYRICA [Suspect]
     Indication: POST HERPETIC NEURALGIA
     Dosage: 50 MG, 1X/DAY
     Route: 048
     Dates: start: 20090721, end: 20090724
  2. AMLODIPINE [Concomitant]
     Dosage: 5 MG, 1X/DAY
     Route: 048
  3. DAFALGAN [Concomitant]
     Dosage: 1 G, 4X/DAY
     Route: 048
  4. MORPHIN [Concomitant]
     Dosage: UNK
     Route: 048
  5. COSAAR PLUS [Concomitant]
     Dosage: UNK
     Route: 048
  6. METRONIDAZOLE [Concomitant]
     Indication: DIARRHOEA INFECTIOUS
     Dosage: 500 MG, 3X/DAY
     Route: 048
     Dates: start: 20090715
  7. KALIUMKLORID [Concomitant]
     Dosage: UNK
     Route: 048
     Dates: start: 20090721
  8. MAGNESIOCARD [Concomitant]
     Dosage: UNK
     Route: 048
     Dates: start: 20090723
  9. CIPROXIN [Concomitant]
     Indication: URINARY TRACT INFECTION
     Dosage: 500 MG, 3X/DAY
     Route: 048
     Dates: start: 20090723, end: 20090729

REACTIONS (1)
  - MUSCLE CONTRACTIONS INVOLUNTARY [None]
